FAERS Safety Report 21710875 (Version 2)
Quarter: 2023Q1

REPORT INFORMATION
  Report Type: Spontaneous
  Country: US (occurrence: US)
  Receive Date: 20221212
  Receipt Date: 20230316
  Transmission Date: 20230418
  Serious: No
  Sender: FDA-Public Use
  Company Number: US-BRISTOL-MYERS SQUIBB COMPANY-2022-150907

PATIENT
  Age: 59 Year
  Sex: Male
  Weight: 75.7 kg

DRUGS (3)
  1. REVLIMID [Suspect]
     Active Substance: LENALIDOMIDE
     Indication: Plasma cell myeloma
     Route: 048
     Dates: start: 20161001
  2. REVLIMID [Suspect]
     Active Substance: LENALIDOMIDE
     Route: 048
     Dates: start: 20200218
  3. REVLIMID [Suspect]
     Active Substance: LENALIDOMIDE
     Dosage: FREQUENCY: D1-21 Q28 DAYS
     Route: 048
     Dates: start: 20200218

REACTIONS (2)
  - Laboratory test abnormal [Unknown]
  - Monoclonal immunoglobulin increased [Not Recovered/Not Resolved]

NARRATIVE: CASE EVENT DATE: 20220101
